FAERS Safety Report 6184192-2 (Version None)
Quarter: 2009Q2

REPORT INFORMATION
  Report Type: 
  Country: None (occurrence: None)
  Receive Date: 20090506
  Receipt Date: 20090422
  Transmission Date: 20091009
  Serious: Yes (Other)
  Sender: FDA-Public Use
  Company Number: VISP-PR-0904S-0166

PATIENT
  Sex: Female

DRUGS (1)
  1. VISIPAQUE [Suspect]
     Indication: DRUG USE FOR UNKNOWN INDICATION
     Dosage: 150 ML, SINGLE DOSE, I.V.
     Route: 042
     Dates: start: 20060101, end: 20060101

REACTIONS (11)
  - ARTHROPATHY [None]
  - BURNING SENSATION MUCOSAL [None]
  - GASTRIC CANCER [None]
  - ILEUS PARALYTIC [None]
  - MASS [None]
  - METAL POISONING [None]
  - OSTEOMYELITIS [None]
  - PHARYNGEAL NEOPLASM [None]
  - PHARYNGEAL OEDEMA [None]
  - RASH [None]
  - SWOLLEN TONGUE [None]
